FAERS Safety Report 14139600 (Version 2)
Quarter: 2017Q4

REPORT INFORMATION
  Report Type: Report from Study
  Country: AU (occurrence: AU)
  Receive Date: 20171029
  Receipt Date: 20171124
  Transmission Date: 20180321
  Serious: Yes (Other)
  Sender: FDA-Public Use
  Company Number: PHHY2014AU070097

PATIENT
  Age: 42 Year
  Sex: Female

DRUGS (1)
  1. GILENYA [Suspect]
     Active Substance: FINGOLIMOD HYDROCHLORIDE
     Indication: MULTIPLE SCLEROSIS
     Dosage: QD
     Route: 048
     Dates: start: 20131010

REACTIONS (10)
  - Musculoskeletal pain [Unknown]
  - Dry mouth [Unknown]
  - Fatigue [Unknown]
  - Genital herpes [Recovered/Resolved]
  - Gamma-glutamyltransferase increased [Unknown]
  - Lymphocyte count increased [Unknown]
  - Arthralgia [Unknown]
  - Pain in extremity [Unknown]
  - Respiratory tract infection [Recovered/Resolved]
  - Muscle spasms [Unknown]

NARRATIVE: CASE EVENT DATE: 20131017
